FAERS Safety Report 13470162 (Version 1)
Quarter: 2017Q2

REPORT INFORMATION
  Report Type: Spontaneous
  Country: US (occurrence: US)
  Receive Date: 20170421
  Receipt Date: 20170421
  Transmission Date: 20170830
  Serious: No
  Sender: FDA-Public Use
  Company Number: None

PATIENT
  Age: 67 Year
  Sex: Female

DRUGS (1)
  1. IBRANCE [Suspect]
     Active Substance: PALBOCICLIB
     Indication: PRODUCT USED FOR UNKNOWN INDICATION
     Dosage: 100MG DAILY FOR 21 DAYS ON, 7 DAYS OFF  PO
     Route: 048
     Dates: start: 20161021, end: 20170313

REACTIONS (3)
  - Fatigue [None]
  - Therapy cessation [None]
  - Neuropathy peripheral [None]

NARRATIVE: CASE EVENT DATE: 20170313
